FAERS Safety Report 14029602 (Version 1)
Quarter: 2017Q4

REPORT INFORMATION
  Report Type: Spontaneous
  Country: US (occurrence: US)
  Receive Date: 20171002
  Receipt Date: 20171002
  Transmission Date: 20180321
  Serious: No
  Sender: FDA-Public Use
  Company Number: US-JAZZ-2017-US-010021

PATIENT
  Sex: Female

DRUGS (28)
  1. GABAPENTIN. [Concomitant]
     Active Substance: GABAPENTIN
  2. PYRIDOXAL 5-PHOSPHATE [Concomitant]
  3. XYREM [Suspect]
     Active Substance: SODIUM OXYBATE
     Indication: CATAPLEXY
     Dosage: DOSE ADJUSTMENT
     Route: 048
     Dates: start: 200506, end: 2017
  4. XYREM [Suspect]
     Active Substance: SODIUM OXYBATE
     Dosage: 3.5 G, QD
     Route: 048
     Dates: start: 201707
  5. ESTAZOLAM. [Concomitant]
     Active Substance: ESTAZOLAM
  6. VYVANSE [Concomitant]
     Active Substance: LISDEXAMFETAMINE DIMESYLATE
  7. HYDROCODONE BITARTRATE AND ACETAMINOPHEN [Concomitant]
     Active Substance: ACETAMINOPHEN\HYDROCODONE BITARTRATE
  8. NUVIGIL [Concomitant]
     Active Substance: ARMODAFINIL
  9. VITAMIN C [Concomitant]
     Active Substance: ASCORBIC ACID
  10. CLONAZEPAM. [Concomitant]
     Active Substance: CLONAZEPAM
  11. XYREM [Suspect]
     Active Substance: SODIUM OXYBATE
     Indication: NARCOLEPSY
     Dosage: 2.5G, BID
     Route: 048
     Dates: start: 200505, end: 200506
  12. UBIQUINOL [Concomitant]
     Active Substance: UBIQUINOL
  13. XYREM [Suspect]
     Active Substance: SODIUM OXYBATE
     Dosage: 4 G, QD
     Route: 048
     Dates: start: 201707
  14. ACYCLOVIR                          /00587301/ [Concomitant]
     Active Substance: ACYCLOVIR
  15. CHLOROPHYLL [Concomitant]
  16. MALIC ACID [Concomitant]
     Active Substance: MALIC ACID
  17. OXYCODONE HYDROCHLORIDE. [Concomitant]
     Active Substance: OXYCODONE HYDROCHLORIDE
  18. PANTOTHENIC ACID [Concomitant]
     Active Substance: PANTOTHENIC ACID
  19. ZOFRAN [Concomitant]
     Active Substance: ONDANSETRON HYDROCHLORIDE
  20. VITAMIN D3 [Concomitant]
     Active Substance: CHOLECALCIFEROL
  21. ALPHA LIPOIC ACID [Concomitant]
     Active Substance: .ALPHA.-LIPOIC ACID
  22. FOLINIC ACID [Concomitant]
     Active Substance: LEUCOVORIN
  23. THIAMINE. [Concomitant]
     Active Substance: THIAMINE
  24. RIBOFLAVIN [Concomitant]
     Active Substance: RIBOFLAVIN
  25. TEMAZEPAM. [Concomitant]
     Active Substance: TEMAZEPAM
  26. LITHIUM OROTATE [Concomitant]
     Active Substance: LITHIUM OROTATE
  27. HYDROXYZINE HCL [Concomitant]
     Active Substance: HYDROXYZINE HYDROCHLORIDE
  28. HYDROXYZINE PAM [Concomitant]
     Active Substance: HYDROXYZINE PAMOATE

REACTIONS (2)
  - Malaise [Unknown]
  - Initial insomnia [Not Recovered/Not Resolved]
